FAERS Safety Report 4908946-2 (Version None)
Quarter: 2006Q1

REPORT INFORMATION
  Report Type: 
  Country: None (occurrence: None)
  Receive Date: 20060209
  Receipt Date: 20060129
  Transmission Date: 20060701
  Serious: Yes (Other)
  Sender: FDA-Public Use
  Company Number: 2006013957

PATIENT
  Age: 2 Month
  Sex: Male
  Weight: 4.9896 kg

DRUGS (1)
  1. INFANT'S PEDIACARE DECONGESTANT AND COUGH DROPS (PSEUDOEPHEDRINE, [Suspect]
     Indication: NASOPHARYNGITIS
     Dosage: 0.4 ML 4 TIMES A DAY, ORAL
     Route: 048
     Dates: start: 20060125

REACTIONS (3)
  - CRYING [None]
  - ORAL INTAKE REDUCED [None]
  - SOMNOLENCE [None]
